FAERS Safety Report 7020469-6 (Version None)
Quarter: 2010Q3

REPORT INFORMATION
  Report Type: 
  Country: None (occurrence: None)
  Receive Date: 20100927
  Receipt Date: 20100917
  Transmission Date: 20110219
  Serious: Yes (Other)
  Sender: FDA-Public Use
  Company Number: 2010SP049528

PATIENT
  Age: 65 Year
  Sex: Female

DRUGS (7)
  1. TEMODAL [Suspect]
     Indication: GLIOBLASTOMA MULTIFORME
     Dosage: 250 MG ; 250 MG
     Dates: start: 20100610
  2. TEMODAL [Suspect]
     Indication: GLIOBLASTOMA MULTIFORME
     Dosage: 250 MG ; 250 MG
     Dates: start: 20100823
  3. DEXAMETHASONE [Concomitant]
  4. OSTELIN [Concomitant]
  5. CALTRATE [Concomitant]
  6. PARACETAMOL [Concomitant]
  7. NAVOBAN [Concomitant]

REACTIONS (7)
  - CONVULSION [None]
  - FATIGUE [None]
  - MEMORY IMPAIRMENT [None]
  - MUSCLE SPASMS [None]
  - SYNCOPE [None]
  - TREMOR [None]
  - VOMITING [None]
